FAERS Safety Report 4375328-4 (Version None)
Quarter: 2004Q2

REPORT INFORMATION
  Report Type: 
  Country: None (occurrence: None)
  Receive Date: 20040608
  Receipt Date: 20040520
  Transmission Date: 20050107
  Serious: Yes (Death)
  Sender: FDA-Public Use
  Company Number: CIO04013323

PATIENT
  Age: 34 Year
  Sex: Female

DRUGS (1)
  1. NYQUIL, FORM/ VERSION/ FLAVOR UNKNOWN (ETHANOL, PARACETAMOL, CHLORPHEN [Suspect]
     Indication: NASOPHARYNGITIS
     Dosage: ORAL
     Route: 048

REACTIONS (2)
  - APNOEA [None]
  - HYPERSOMNIA [None]
